FAERS Safety Report 20562356 (Version 1)
Quarter: 2022Q1

REPORT INFORMATION
  Report Type: Spontaneous
  Country: CN (occurrence: CN)
  Receive Date: 20220307
  Receipt Date: 20220307
  Transmission Date: 20220423
  Serious: Yes (Life-Threatening)
  Sender: FDA-Public Use
  Company Number: CN-CELGENE-CHN-20220300585

PATIENT
  Age: 39 Year
  Sex: Male
  Weight: 69 kg

DRUGS (18)
  1. PACLITAXEL [Suspect]
     Active Substance: PACLITAXEL
     Indication: Neoplasm malignant
     Route: 065
     Dates: start: 20211013
  2. PACLITAXEL [Suspect]
     Active Substance: PACLITAXEL
     Indication: Off label use
     Route: 065
     Dates: start: 20211105
  3. PACLITAXEL [Suspect]
     Active Substance: PACLITAXEL
     Route: 065
     Dates: start: 20211126
  4. PACLITAXEL [Suspect]
     Active Substance: PACLITAXEL
     Route: 065
     Dates: start: 20211217
  5. PACLITAXEL [Suspect]
     Active Substance: PACLITAXEL
     Route: 065
     Dates: start: 20220111
  6. PACLITAXEL [Suspect]
     Active Substance: PACLITAXEL
     Route: 065
     Dates: start: 20220217, end: 20220217
  7. CARBOPLATIN [Suspect]
     Active Substance: CARBOPLATIN
     Indication: Neoplasm malignant
     Route: 041
     Dates: start: 20211013
  8. CARBOPLATIN [Suspect]
     Active Substance: CARBOPLATIN
     Route: 041
     Dates: start: 20211105
  9. CARBOPLATIN [Suspect]
     Active Substance: CARBOPLATIN
     Route: 041
     Dates: start: 20211126
  10. CARBOPLATIN [Suspect]
     Active Substance: CARBOPLATIN
     Route: 041
     Dates: start: 20211217
  11. CARBOPLATIN [Suspect]
     Active Substance: CARBOPLATIN
     Route: 041
     Dates: start: 20220111
  12. CARBOPLATIN [Suspect]
     Active Substance: CARBOPLATIN
     Dosage: 553 MILLIGRAM
     Route: 041
     Dates: start: 20220217, end: 20220217
  13. NIVOLUMAB [Suspect]
     Active Substance: NIVOLUMAB
     Indication: Neoplasm malignant
     Route: 041
     Dates: start: 20211013
  14. NIVOLUMAB [Suspect]
     Active Substance: NIVOLUMAB
     Indication: Off label use
     Route: 041
     Dates: start: 20211105
  15. NIVOLUMAB [Suspect]
     Active Substance: NIVOLUMAB
     Route: 041
     Dates: start: 20211126
  16. NIVOLUMAB [Suspect]
     Active Substance: NIVOLUMAB
     Route: 041
     Dates: start: 20211217
  17. NIVOLUMAB [Suspect]
     Active Substance: NIVOLUMAB
     Route: 041
     Dates: start: 20220111
  18. NIVOLUMAB [Suspect]
     Active Substance: NIVOLUMAB
     Dosage: 200 MILLIGRAM
     Route: 041
     Dates: start: 20220217, end: 20220217

REACTIONS (1)
  - Anaphylactic shock [Recovering/Resolving]

NARRATIVE: CASE EVENT DATE: 20220217
